FAERS Safety Report 4650356-X (Version None)
Quarter: 2005Q2

REPORT INFORMATION
  Report Type: 
  Country: None (occurrence: None)
  Receive Date: 20050429
  Receipt Date: 20050414
  Transmission Date: 20051028
  Serious: No
  Sender: FDA-Public Use
  Company Number: 2005AC00592

PATIENT
  Age: 66 Year
  Sex: Male

DRUGS (8)
  1. BUDESONIDE + FORMOTEROL (SYMBICORT) [Suspect]
     Dosage: 400 UG/12 UG
  2. RITONAVIR [Suspect]
     Dosage: 100 MG BID
  3. FLUTICASONE PROPIONATE [Suspect]
     Dosage: 500 UG BID IH
     Route: 055
  4. DIDANOSINE [Concomitant]
  5. STAVUDINE [Concomitant]
  6. AMPRENAVIR [Concomitant]
  7. ABACAVIR [Concomitant]
  8. SALMETEROL [Concomitant]

REACTIONS (8)
  - ADRENAL INSUFFICIENCY [None]
  - ASEPTIC NECROSIS BONE [None]
  - CUSHINGOID [None]
  - DRUG INTERACTION [None]
  - FEMORAL NECK FRACTURE [None]
  - MYOPATHY [None]
  - ORAL CANDIDIASIS [None]
  - OSTEOPENIA [None]
